FAERS Safety Report 7568942-6 (Version None)
Quarter: 2011Q2

REPORT INFORMATION
  Report Type: 
  Country: None (occurrence: None)
  Receive Date: 20110623
  Receipt Date: 20110609
  Transmission Date: 20111010
  Serious: No
  Sender: FDA-Public Use
  Company Number: FR-GENENTECH-317247

PATIENT
  Sex: Male

DRUGS (32)
  1. CYCLOPHOSPHAMIDE [Suspect]
     Dosage: 1200 MG, UNK
     Route: 065
     Dates: start: 20080304
  2. ETOPOSIDE [Suspect]
     Indication: LYMPHOMA
     Dosage: 120 MG, UNK
     Route: 065
     Dates: start: 20071009
  3. DOXORUBICIN HCL [Suspect]
     Dosage: 50 MG, UNK
     Route: 065
     Dates: start: 20080118
  4. SOLU-MEDROL [Suspect]
     Dosage: 80 MG, UNK
     Route: 065
     Dates: start: 20071112
  5. RITUXIMAB [Suspect]
     Dosage: 750 MG, UNK
     Route: 042
     Dates: start: 20071213
  6. CYCLOPHOSPHAMIDE [Suspect]
     Dosage: 1200 MG, UNK
     Route: 065
     Dates: start: 20080118
  7. ETOPOSIDE [Suspect]
     Dosage: 120 MG, UNK
     Route: 065
     Dates: start: 20071112
  8. ETOPOSIDE [Suspect]
     Dosage: 120 MG, UNK
     Route: 065
     Dates: start: 20071213
  9. ETOPOSIDE [Suspect]
     Dosage: 1600 MG, UNK
     Route: 065
     Dates: start: 20080423
  10. CARMUSTINE [Suspect]
     Indication: LYMPHOMA
     Dosage: 600 MG, UNK
     Route: 065
     Dates: start: 20080423
  11. RITUXIMAB [Suspect]
     Dosage: 750 MG, UNK
     Route: 042
     Dates: start: 20071112
  12. DOXORUBICIN HCL [Suspect]
     Indication: LYMPHOMA
     Dosage: 50 MG, UNK
     Route: 065
     Dates: start: 20071009
  13. DOXORUBICIN HCL [Suspect]
     Dosage: 50 MG, UNK
     Route: 065
     Dates: start: 20071213
  14. DOXORUBICIN HCL [Suspect]
     Dosage: 50 MG, UNK
     Route: 065
     Dates: start: 20080212
  15. SOLU-MEDROL [Suspect]
     Dosage: 80 MG, UNK
     Route: 065
     Dates: start: 20080118
  16. ETOPOSIDE [Suspect]
     Dosage: 120 MG, UNK
     Route: 065
     Dates: start: 20080304
  17. MELPHALAN HYDROCHLORIDE [Suspect]
     Indication: LYMPHOMA
     Dosage: 240 MG, UNK
     Route: 065
     Dates: start: 20080423
  18. CYCLOPHOSPHAMIDE [Suspect]
     Dosage: 1200 MG, UNK
     Route: 065
     Dates: start: 20080212
  19. SOLU-MEDROL [Suspect]
     Dosage: 80 MG, UNK
     Route: 065
     Dates: start: 20071213
  20. CYCLOPHOSPHAMIDE [Suspect]
     Dosage: 1200 MG, UNK
     Route: 065
     Dates: start: 20071112
  21. ETOPOSIDE [Suspect]
     Dosage: 120 MG, UNK
     Route: 065
     Dates: start: 20080118
  22. ETOPOSIDE [Suspect]
     Dosage: 120 MG, UNK
     Route: 065
     Dates: start: 20080212
  23. DOXORUBICIN HCL [Suspect]
     Dosage: 50 MG, UNK
     Route: 065
     Dates: start: 20071112
  24. SOLU-MEDROL [Suspect]
     Indication: LYMPHOMA
     Dosage: 80 MG, UNK
     Route: 065
     Dates: start: 20071009
  25. RITUXIMAB [Suspect]
     Indication: LYMPHOMA
     Dosage: UNK
     Route: 042
  26. CYCLOPHOSPHAMIDE [Suspect]
     Dosage: 1200 MG, UNK
     Route: 065
     Dates: start: 20071213
  27. DOXORUBICIN HCL [Suspect]
     Dosage: 50 MG, UNK
     Route: 065
     Dates: start: 20080304
  28. SOLU-MEDROL [Suspect]
     Dosage: 80 MG, UNK
     Route: 065
     Dates: start: 20080212
  29. SOLU-MEDROL [Suspect]
     Dosage: 80 MG, UNK
     Route: 065
     Dates: start: 20080304
  30. CYTARABINE [Suspect]
     Indication: LYMPHOMA
     Dosage: 3200 MG, UNK
     Route: 065
     Dates: start: 20080423
  31. RITUXIMAB [Suspect]
     Dosage: 750 MG, UNK
     Route: 042
     Dates: start: 20071009
  32. CYCLOPHOSPHAMIDE [Suspect]
     Indication: LYMPHOMA
     Dosage: 1200 MG, UNK
     Route: 065
     Dates: start: 20071009

REACTIONS (1)
  - HERPES ZOSTER [None]
